FAERS Safety Report 15631454 (Version 2)
Quarter: 2019Q1

REPORT INFORMATION
  Report Type: Report from Study
  Country: None (occurrence: TW)
  Receive Date: 20181119
  Receipt Date: 20190123
  Transmission Date: 20190417
  Serious: Yes (Hospitalization)
  Sender: FDA-Public Use
  Company Number: TW-ABBVIE-18K-153-2555890-00

PATIENT
  Age: 48 Year
  Sex: Male
  Weight: 78.3 kg

DRUGS (10)
  1. HUMIRA [Suspect]
     Active Substance: ADALIMUMAB
     Indication: HIDRADENITIS
     Route: 058
     Dates: start: 20160829
  2. DILATREND [Concomitant]
     Active Substance: CARVEDILOL
     Indication: MYOCARDIAL INFARCTION
     Route: 048
     Dates: start: 20180919, end: 20181114
  3. ULTRACET [Concomitant]
     Active Substance: ACETAMINOPHEN\TRAMADOL HYDROCHLORIDE
  4. BRILINTA [Concomitant]
     Active Substance: TICAGRELOR
     Indication: MYOCARDIAL INFARCTION
     Route: 048
     Dates: start: 20180913, end: 20181114
  5. RANITIDINE. [Concomitant]
     Active Substance: RANITIDINE
     Indication: MYOCARDIAL INFARCTION
     Route: 048
     Dates: start: 20180913, end: 20181227
  6. HUMIRA [Suspect]
     Active Substance: ADALIMUMAB
     Indication: HIDRADENITIS
     Route: 058
     Dates: start: 20171211
  7. ULTRACET [Concomitant]
     Active Substance: ACETAMINOPHEN\TRAMADOL HYDROCHLORIDE
     Indication: MYOCARDIAL INFARCTION
     Route: 048
     Dates: start: 20180913, end: 20181114
  8. BOKEY [Concomitant]
     Indication: MYOCARDIAL INFARCTION
     Route: 048
     Dates: start: 20180913
  9. LIPITOR [Concomitant]
     Active Substance: ATORVASTATIN CALCIUM
     Indication: MYOCARDIAL INFARCTION
     Route: 048
     Dates: start: 20180919, end: 20181227
  10. DIOVAN [Concomitant]
     Active Substance: VALSARTAN
     Indication: MYOCARDIAL INFARCTION
     Route: 048
     Dates: start: 20180919, end: 20181114

REACTIONS (9)
  - Hidradenitis [Not Recovered/Not Resolved]
  - Dizziness [Recovering/Resolving]
  - Blood creatine decreased [Unknown]
  - White blood cell count increased [Unknown]
  - Escherichia infection [Unknown]
  - Hypotension [Recovering/Resolving]
  - Haematocrit decreased [Unknown]
  - Septic shock [Recovering/Resolving]
  - Haemoglobin decreased [Unknown]

NARRATIVE: CASE EVENT DATE: 2018
